FAERS Safety Report 18074485 (Version 2)
Quarter: 2023Q2

REPORT INFORMATION
  Report Type: Spontaneous
  Country: US (occurrence: US)
  Receive Date: 20200727
  Receipt Date: 20230518
  Transmission Date: 20230722
  Serious: Yes (Death, Hospitalization, Other)
  Sender: FDA-Public Use
  Company Number: US-GILEAD-2020-0485549

PATIENT
  Sex: Male
  Weight: 86.168 kg

DRUGS (14)
  1. TRUVADA [Suspect]
     Active Substance: EMTRICITABINE\TENOFOVIR DISOPROXIL FUMARATE
     Indication: HIV infection
     Dosage: UNK
     Route: 065
     Dates: end: 2017
  2. TRUVADA [Suspect]
     Active Substance: EMTRICITABINE\TENOFOVIR DISOPROXIL FUMARATE
     Dosage: UNK
     Route: 048
     Dates: start: 2010, end: 201611
  3. DESCOVY [Concomitant]
     Active Substance: EMTRICITABINE\TENOFOVIR ALAFENAMIDE FUMARATE
  4. SODIUM BICARBONATE [Concomitant]
     Active Substance: SODIUM BICARBONATE
  5. FUROSEMIDE\POTASSIUM CHLORIDE [Concomitant]
     Active Substance: FUROSEMIDE\POTASSIUM CHLORIDE
  6. ZOSYN [Concomitant]
     Active Substance: PIPERACILLIN SODIUM\TAZOBACTAM SODIUM
  7. VANCOMYCIN [Concomitant]
     Active Substance: VANCOMYCIN
  8. KEPPRA XR [Concomitant]
     Active Substance: LEVETIRACETAM
  9. DEPAKOTE [Concomitant]
     Active Substance: DIVALPROEX SODIUM
  10. EPZICOM [Concomitant]
     Active Substance: ABACAVIR SULFATE\LAMIVUDINE
  11. EVOTAZ [Concomitant]
     Active Substance: ATAZANAVIR SULFATE\COBICISTAT
  12. NORVIR [Concomitant]
     Active Substance: RITONAVIR
  13. REYATAZ [Concomitant]
     Active Substance: ATAZANAVIR SULFATE
  14. SUSTIVA [Concomitant]
     Active Substance: EFAVIRENZ

REACTIONS (12)
  - Chronic kidney disease [Fatal]
  - End stage renal disease [Recovered/Resolved]
  - Renal failure [Fatal]
  - Acute kidney injury [Recovered/Resolved]
  - Acute kidney injury [Not Recovered/Not Resolved]
  - Acute respiratory failure [Recovered/Resolved]
  - Status epilepticus [Recovered/Resolved]
  - Metabolic acidosis [Recovered/Resolved]
  - Craniocerebral injury [Recovered/Resolved]
  - Pain [Unknown]
  - Anaemia [Recovered/Resolved]
  - Emotional distress [Unknown]

NARRATIVE: CASE EVENT DATE: 20160101
